FAERS Safety Report 22293228 (Version 1)
Quarter: 2023Q2

REPORT INFORMATION
  Report Type: Spontaneous
  Country: US (occurrence: US)
  Receive Date: 20230508
  Receipt Date: 20230508
  Transmission Date: 20230721
  Serious: Yes (Hospitalization)
  Sender: FDA-Public Use
  Company Number: US-STRIDES ARCOLAB LIMITED-2023SP006618

PATIENT
  Age: 20 Year
  Sex: Female

DRUGS (24)
  1. DEXAMETHASONE [Suspect]
     Active Substance: DEXAMETHASONE
     Indication: Haemophagocytic lymphohistiocytosis
     Dosage: 10 MILLIGRAM/SQ. METER PER DAY
     Route: 048
  2. DEXAMETHASONE [Suspect]
     Active Substance: DEXAMETHASONE
     Dosage: UNK (TAPERED OFF)
     Route: 065
  3. ETOPOSIDE [Suspect]
     Active Substance: ETOPOSIDE
     Indication: Haemophagocytic lymphohistiocytosis
     Dosage: UNK
     Route: 065
  4. FUROSEMIDE [Concomitant]
     Active Substance: FUROSEMIDE
     Indication: Polyuria
     Dosage: UNK
     Route: 042
  5. HUMAN PLASMA [Concomitant]
     Active Substance: HUMAN PLASMA
     Indication: Uterine haemorrhage
     Dosage: 3 UNITS
     Route: 065
  6. LIDOCAINE [Concomitant]
     Active Substance: LIDOCAINE
     Indication: Product used for unknown indication
     Dosage: UNK
     Route: 061
  7. CEFTRIAXONE [Concomitant]
     Active Substance: CEFTRIAXONE
     Indication: Endometritis
     Dosage: UNK
     Route: 065
  8. CEFTRIAXONE [Concomitant]
     Active Substance: CEFTRIAXONE
     Indication: Antibiotic therapy
  9. METRONIDAZOLE [Concomitant]
     Active Substance: METRONIDAZOLE
     Indication: Endometritis
     Dosage: UNK
     Route: 065
  10. METRONIDAZOLE [Concomitant]
     Active Substance: METRONIDAZOLE
     Indication: Antibiotic therapy
  11. GENTAMICIN [Concomitant]
     Active Substance: GENTAMICIN
     Indication: Endometritis
     Dosage: UNK
     Route: 065
  12. GENTAMICIN [Concomitant]
     Active Substance: GENTAMICIN
     Indication: Antibiotic therapy
  13. IMIPENEM [Concomitant]
     Active Substance: IMIPENEM
     Indication: Endometritis
     Dosage: UNK
     Route: 065
  14. IMIPENEM [Concomitant]
     Active Substance: IMIPENEM
     Indication: Antibiotic therapy
  15. VANCOMYCIN [Concomitant]
     Active Substance: VANCOMYCIN
     Indication: Endometritis
     Dosage: UNK
     Route: 065
  16. VANCOMYCIN [Concomitant]
     Active Substance: VANCOMYCIN
     Indication: Antibiotic therapy
  17. DOXYCYCLINE [Concomitant]
     Active Substance: DOXYCYCLINE
     Indication: Endometritis
     Dosage: UNK
     Route: 065
  18. DOXYCYCLINE [Concomitant]
     Active Substance: DOXYCYCLINE
     Indication: Antibiotic therapy
  19. LINEZOLID [Concomitant]
     Active Substance: LINEZOLID
     Indication: Endometritis
     Dosage: UNK
     Route: 065
  20. LINEZOLID [Concomitant]
     Active Substance: LINEZOLID
     Indication: Antibiotic therapy
  21. AMPICILLIN SODIUM\SULBACTAM SODIUM [Concomitant]
     Active Substance: AMPICILLIN SODIUM\SULBACTAM SODIUM
     Indication: Endometritis
     Dosage: UNK
     Route: 065
  22. AMPICILLIN SODIUM\SULBACTAM SODIUM [Concomitant]
     Active Substance: AMPICILLIN SODIUM\SULBACTAM SODIUM
     Indication: Antibiotic therapy
  23. MEROPENEM [Concomitant]
     Active Substance: MEROPENEM
     Indication: Endometritis
     Dosage: UNK
     Route: 065
  24. MEROPENEM [Concomitant]
     Active Substance: MEROPENEM
     Indication: Antibiotic therapy

REACTIONS (4)
  - Arthralgia [Unknown]
  - Insomnia [Unknown]
  - Cushingoid [Unknown]
  - Off label use [Unknown]
